FAERS Safety Report 5094391-9 (Version None)
Quarter: 2006Q3

REPORT INFORMATION
  Report Type: 
  Country: None (occurrence: None)
  Receive Date: 20060829
  Receipt Date: 20060816
  Transmission Date: 20061208
  Serious: Yes (Other)
  Sender: FDA-Public Use
  Company Number: 2006066071

PATIENT
  Age: 75 Year
  Sex: Female
  Weight: 80 kg

DRUGS (5)
  1. CABERGOLINE [Suspect]
     Indication: PARKINSON'S DISEASE
     Dosage: 2 MG (DAILY), ORAL
     Route: 048
     Dates: start: 20020101
  2. MADOPAR (BENSERAZIDE, HYDROCHLORIDE, LEVODOPA) [Concomitant]
  3. ALL OTHER THERAPEUTIC PRODUCTS [Concomitant]
  4. BISOPROLOL ^RATIOPHARM^ (BISOPROLOL) [Concomitant]
  5. HYDROCHLOROTHIAZIDE [Concomitant]

REACTIONS (4)
  - AORTIC VALVE INCOMPETENCE [None]
  - AORTIC VALVE SCLEROSIS [None]
  - HYPERTENSIVE HEART DISEASE [None]
  - MITRAL VALVE INCOMPETENCE [None]
